FAERS Safety Report 5190544-X (Version None)
Quarter: 2006Q4

REPORT INFORMATION
  Report Type: 
  Country: None (occurrence: None)
  Receive Date: 20061222
  Receipt Date: 20060509
  Transmission Date: 20070319
  Serious: Yes (Hospitalization)
  Sender: FDA-Public Use
  Company Number: US-ELI_LILLY_AND_COMPANY-US200609002097

PATIENT
  Age: 61 Year
  Sex: Female
  Weight: 73.015 kg

DRUGS (9)
  1. ARIPIPRAZOLE [Concomitant]
     Route: 048
     Dates: start: 19980101, end: 20000101
  2. QUETIAPINE FUMARATE [Concomitant]
     Route: 048
     Dates: start: 19980101, end: 20060101
  3. RISPERIDONE [Concomitant]
     Route: 048
     Dates: start: 19980101, end: 20060101
  4. CHLORPROMAZINE [Concomitant]
     Route: 048
     Dates: start: 19980101, end: 20060101
  5. PAROXETINE HCL [Concomitant]
     Dates: start: 19980101, end: 20060101
  6. SERTRALINE [Concomitant]
     Route: 048
     Dates: start: 19980101, end: 20060101
  7. VENLAFAXINE HCL [Concomitant]
     Route: 048
     Dates: start: 19980101, end: 20060101
  8. HYDROCHLOROTHIAZIDE [Concomitant]
     Route: 048
     Dates: start: 19980101, end: 20060101
  9. ZYPREXA [Suspect]
     Indication: DEPRESSION
     Route: 048
     Dates: start: 19980101, end: 20000101

REACTIONS (4)
  - BLOOD CHOLESTEROL INCREASED [None]
  - CARDIAC OPERATION [None]
  - CHEST PAIN [None]
  - DIABETES MELLITUS [None]
